FAERS Safety Report 9647101 (Version 1)
Quarter: 2013Q4

REPORT INFORMATION
  Report Type: Spontaneous
  Country: US (occurrence: US)
  Receive Date: 20131027
  Receipt Date: 20131027
  Transmission Date: 20140711
  Serious: No
  Sender: FDA-Public Use
  Company Number: US-PURDUE-USA-2013-0104588

PATIENT
  Age: 46 Year
  Sex: Male

DRUGS (1)
  1. OXYCONTIN (NDA 22-272) [Suspect]
     Indication: SCIATICA
     Dosage: 60 MG, TID
     Route: 048
     Dates: start: 201304

REACTIONS (3)
  - Extra dose administered [Unknown]
  - Expired drug administered [Unknown]
  - Drug ineffective [Not Recovered/Not Resolved]
